FAERS Safety Report 6620485-X (Version None)
Quarter: 2010Q1

REPORT INFORMATION
  Report Type: 
  Country: None (occurrence: None)
  Receive Date: 20100309
  Receipt Date: 20100304
  Transmission Date: 20100710
  Serious: Yes (Other)
  Sender: FDA-Public Use
  Company Number: IE-BRISTOL-MYERS SQUIBB COMPANY-15004922

PATIENT
  Age: 29 Year
  Sex: Female
  Weight: 83 kg

DRUGS (3)
  1. ATAZANAVIR [Suspect]
     Indication: HIV INFECTION
     Route: 048
     Dates: start: 20090729, end: 20091112
  2. TRUVADA [Suspect]
     Indication: HIV INFECTION
     Dosage: 1 D.F:1 TAB
     Route: 048
     Dates: start: 20090729, end: 20091112
  3. RITONAVIR [Suspect]
     Indication: HIV INFECTION
     Route: 048
     Dates: start: 20090729, end: 20091112

REACTIONS (3)
  - CAESAREAN SECTION [None]
  - NORMAL NEWBORN [None]
  - PREGNANCY [None]
